FAERS Safety Report 6298692-8 (Version None)
Quarter: 2009Q3

REPORT INFORMATION
  Report Type: 
  Country: None (occurrence: None)
  Receive Date: 20090806
  Receipt Date: 20080104
  Transmission Date: 20100115
  Serious: Yes (Death)
  Sender: FDA-Public Use
  Company Number: US-ASTRAZENECA-2007UW19277

PATIENT
  Age: 20614 Day
  Sex: Female
  Weight: 88.9 kg

DRUGS (8)
  1. SEROQUEL [Suspect]
     Indication: SLEEP DISORDER
     Route: 048
     Dates: start: 20001120
  2. SEROQUEL [Suspect]
     Route: 048
     Dates: start: 20040126
  3. EFFEXOR [Concomitant]
     Dosage: 75 MG-225 MG
  4. TRAZODONE HCL [Concomitant]
     Dates: start: 20040126
  5. ABILIFY [Concomitant]
     Dosage: 10 MG
     Dates: start: 20040126
  6. XANAX [Concomitant]
     Dates: start: 20040126
  7. RITALIN [Concomitant]
     Dates: start: 20040126
  8. GLUCOPHAGE [Concomitant]
     Dosage: 1500 MG
     Dates: start: 20040126

REACTIONS (3)
  - DEATH [None]
  - DIABETES MELLITUS [None]
  - TYPE 2 DIABETES MELLITUS [None]
